FAERS Safety Report 9570545 (Version 1)
Quarter: 2013Q3

REPORT INFORMATION
  Report Type: Spontaneous
  Country: US (occurrence: None)
  Receive Date: 20130926
  Receipt Date: 20130926
  Transmission Date: 20140515
  Serious: Yes (Other)
  Sender: FDA-Public Use
  Company Number: None

PATIENT
  Age: 54 Year
  Sex: Female
  Weight: 58.06 kg

DRUGS (2)
  1. CIPRO [Suspect]
     Indication: PREOPERATIVE CARE
     Dosage: ONCE DAILY TAKEN BY MOUTH
     Route: 048
     Dates: start: 20130716
  2. CIPRO [Suspect]
     Indication: POSTOPERATIVE CARE
     Dosage: ONCE DAILY TAKEN BY MOUTH
     Route: 048
     Dates: start: 20130716

REACTIONS (5)
  - Urticaria [None]
  - Dermatitis contact [None]
  - Burning sensation [None]
  - Pruritus [None]
  - Erythema [None]
